FAERS Safety Report 9522812 (Version 1)
Quarter: 2013Q1

REPORT INFORMATION
  Report Type: Spontaneous
  Country: US (occurrence: None)
  Receive Date: 20130305
  Receipt Date: 20130305
  Transmission Date: 20140127
  Serious: Yes (Hospitalization)
  Sender: FDA-Public Use
  Company Number: 163-21880-12080426

PATIENT
  Age: 46 Year
  Sex: Female

DRUGS (4)
  1. REVLIMID (LENALIDOMIDE) (CAPSULES) [Suspect]
     Indication: PLASMA CELL MYELOMA
     Dosage: 14 IN 21 D
     Route: 048
     Dates: start: 201207
  2. ASPIRIN [Concomitant]
  3. VELCADE [Concomitant]
  4. DECADRON (DEXAMETHASONE) [Concomitant]

REACTIONS (1)
  - Pulmonary thrombosis [None]
